FAERS Safety Report 4411235-6 (Version None)
Quarter: 2004Q2

REPORT INFORMATION
  Report Type: 
  Country: None (occurrence: None)
  Receive Date: 20040630
  Receipt Date: 20040517
  Transmission Date: 20050107
  Serious: No
  Sender: FDA-Public Use
  Company Number: 04P-163-0261072-00

PATIENT
  Age: 68 Year
  Sex: Female
  Weight: 58.9676 kg

DRUGS (7)
  1. HUMIRA [Suspect]
     Indication: RHEUMATOID ARTHRITIS
     Dosage: 40 MG, 1 IN 2 WK, INJECTION
     Dates: start: 20040503
  2. VOLTARIN [Concomitant]
  3. EFFEXOR XR [Concomitant]
  4. PANTOPRAZOLE [Concomitant]
  5. SULFASALAZINE [Concomitant]
  6. CALCIUM [Concomitant]
  7. TOCOPHEROL CONCENTRATE CAP [Concomitant]

REACTIONS (3)
  - CONDITION AGGRAVATED [None]
  - DRY SKIN [None]
  - PRURITUS [None]
